FAERS Safety Report 15480023 (Version 3)
Quarter: 2018Q4

REPORT INFORMATION
  Report Type: Spontaneous
  Country: AU (occurrence: AU)
  Receive Date: 20181009
  Receipt Date: 20181029
  Transmission Date: 20190205
  Serious: Yes (Hospitalization)
  Sender: FDA-Public Use
  Company Number: AU-LPDUSPRD-20181862

PATIENT
  Age: 50 Year
  Sex: Female
  Weight: 96 kg

DRUGS (1)
  1. FERINJECT [Suspect]
     Active Substance: FERRIC CARBOXYMALTOSE
     Dosage: PLANNED DURATION 1000 MG
     Route: 041
     Dates: start: 20180927, end: 20180927

REACTIONS (3)
  - Bradycardia [Recovered/Resolved]
  - Chest pain [Recovered/Resolved]
  - Dizziness [Recovered/Resolved]

NARRATIVE: CASE EVENT DATE: 20180927
